FAERS Safety Report 9249836 (Version 1)
Quarter: 2013Q2

REPORT INFORMATION
  Report Type: Spontaneous
  Country: FR (occurrence: FR)
  Receive Date: 20130423
  Receipt Date: 20130423
  Transmission Date: 20140414
  Serious: Yes (Death)
  Sender: FDA-Public Use
  Company Number: PHHY2013FR037674

PATIENT
  Age: 71 Year
  Sex: Male

DRUGS (3)
  1. EVEROLIMUS [Suspect]
     Indication: INSULINOMA
     Dosage: 10 MG/DAY
  2. DIAZOXIDE [Concomitant]
     Indication: HYPOGLYCAEMIA
     Dosage: UNK
  3. GLUCOSE [Concomitant]
     Indication: HYPOGLYCAEMIA

REACTIONS (4)
  - Cardiac failure [Fatal]
  - Respiratory distress [Fatal]
  - Pneumonia [Fatal]
  - Pulmonary toxicity [Fatal]
